FAERS Safety Report 4892158-5 (Version None)
Quarter: 2006Q1

REPORT INFORMATION
  Report Type: 
  Country: None (occurrence: None)
  Receive Date: 20060124
  Receipt Date: 20060118
  Transmission Date: 20060701
  Serious: Yes (Death)
  Sender: FDA-Public Use
  Company Number: 2006-US-00401

PATIENT
  Age: 73 Year
  Sex: Male

DRUGS (1)
  1. CLOZAPINE [Suspect]
     Indication: ANXIETY
     Dosage: 75 MG, QD, ORAL
     Route: 048
     Dates: start: 20020101, end: 20051201

REACTIONS (1)
  - CARDIAC FAILURE [None]
